FAERS Safety Report 5779738-X (Version None)
Quarter: 2008Q2

REPORT INFORMATION
  Report Type: 
  Country: None (occurrence: None)
  Receive Date: 20080617
  Receipt Date: 20080604
  Transmission Date: 20081010
  Serious: Yes (Hospitalization)
  Sender: FDA-Public Use
  Company Number: 2008S1009554

PATIENT
  Age: 73 Year
  Sex: Female

DRUGS (5)
  1. TICLOPIDINE HYDROCHLORIDE [Suspect]
     Dosage: 250 MG; ORAL
     Route: 048
  2. ASPIRIN [Suspect]
     Dosage: 250 MG; INTRAVENOUS; 100 MG; INTRAVENOUS
     Route: 042
  3. BUPIVACAINE [Suspect]
     Indication: SPINAL ANAESTHESIA
     Dosage: 12.5 MG; INTRATHECAL
     Route: 037
  4. SUFENTANIL CITRATE [Suspect]
     Indication: SPINAL ANAESTHESIA
     Dosage: 3 UG; INTRATHECAL
     Route: 037
  5. ENOXAPARIN SODIUM [Suspect]
     Dosage: 40 MG; SUBCUTANEOUS
     Route: 058

REACTIONS (2)
  - SPINAL HAEMATOMA [None]
  - SUBARACHNOID HAEMORRHAGE [None]
